FAERS Safety Report 24743513 (Version 1)
Quarter: 2024Q4

REPORT INFORMATION
  Report Type: Spontaneous
  Country: CN (occurrence: CN)
  Receive Date: 20241217
  Receipt Date: 20241217
  Transmission Date: 20250114
  Serious: Yes (Hospitalization, Other)
  Sender: BAXTER
  Company Number: None

PATIENT
  Age: 67 Year
  Sex: Female
  Weight: 50 kg

DRUGS (10)
  1. CYCLOPHOSPHAMIDE [Suspect]
     Active Substance: CYCLOPHOSPHAMIDE
     Indication: Neoplasm
     Dosage: ENDOXAN: 1.0 G, ONE TIME IN ONE DAY D1, DILUTED WITH 100 ML OF 0.9% SODIUM CHLORIDE
     Route: 041
     Dates: start: 20241116, end: 20241116
  2. CYCLOPHOSPHAMIDE [Suspect]
     Active Substance: CYCLOPHOSPHAMIDE
     Indication: Chemotherapy
  3. SODIUM CHLORIDE [Suspect]
     Active Substance: SODIUM CHLORIDE
     Indication: Medication dilution
     Dosage: SODIUM CHLORIDE (0.9%) 100 ML, ONE TIME IN ONE DAY, USED TO DILUTE 0.1 G CYCLOPHOSPHAMIDEONE TIME IN
     Route: 041
     Dates: start: 20241116, end: 20241116
  4. SODIUM CHLORIDE [Suspect]
     Active Substance: SODIUM CHLORIDE
     Dosage: SODIUM CHLORIDE (0.9%) 100 ML, ONE TIME IN ONE DAY, USED TO DILUTE VINDESINE 4MG, ONE TIME IN ONE DA
     Route: 042
     Dates: start: 20241116, end: 20241116
  5. DEXTROSE [Suspect]
     Active Substance: DEXTROSE MONOHYDRATE
     Indication: Medication dilution
     Dosage: GLUCOSE SOLUTION (5%) 250 ML, ONE TIME IN ONE DAY USED TO DILUTE LIPOSOMAL DOXORUBICIN 46MG, IVD, QD
     Route: 041
     Dates: start: 20241115, end: 20241115
  6. VINDESINE SULFATE [Suspect]
     Active Substance: VINDESINE SULFATE
     Indication: Neoplasm
     Dosage: VINDESINE 4MG, ONE TIME IN ONE DAY D1, DILUTED WITH 20 ML OF 0.9% SODIUM CHLORIDE
     Route: 042
     Dates: start: 20241116, end: 20241116
  7. VINDESINE SULFATE [Suspect]
     Active Substance: VINDESINE SULFATE
     Indication: Chemotherapy
  8. VINDESINE SULFATE [Suspect]
     Active Substance: VINDESINE SULFATE
     Indication: Diffuse large B-cell lymphoma stage III
  9. DOXORUBICIN HYDROCHLORIDE [Suspect]
     Active Substance: DOXORUBICIN HYDROCHLORIDE
     Indication: Neoplasm
     Dosage: LIPOSOMAL DOXORUBICIN 46MG, ONE TIME IN ONE DAY D0 USED TO DILUTE (5%) 250 ML GLUCOSE SOLUTION
     Route: 041
     Dates: start: 20241115, end: 20241115
  10. DOXORUBICIN HYDROCHLORIDE [Suspect]
     Active Substance: DOXORUBICIN HYDROCHLORIDE
     Indication: Chemotherapy

REACTIONS (2)
  - Myelosuppression [Recovering/Resolving]
  - Neutrophil count decreased [Recovering/Resolving]

NARRATIVE: CASE EVENT DATE: 20241210
